FAERS Safety Report 24878384 (Version 4)
Quarter: 2025Q2

REPORT INFORMATION
  Report Type: Spontaneous
  Country: CA (occurrence: CA)
  Receive Date: 20250123
  Receipt Date: 20250617
  Transmission Date: 20250717
  Serious: Yes (Other)
  Sender: PFIZER
  Company Number: CA-PFIZER INC-202400083343

PATIENT
  Age: 70 Year
  Sex: Male

DRUGS (10)
  1. VYNDAQEL [Suspect]
     Active Substance: TAFAMIDIS MEGLUMINE
     Indication: Cardiac amyloidosis
     Dosage: 80 MG, 1X/DAY
     Route: 048
     Dates: start: 20211222
  2. CLOPIDOGREL [Concomitant]
     Active Substance: CLOPIDOGREL BISULFATE
     Dosage: 1 DF (75 DAILY)
  3. DOCUSATE SODIUM [Concomitant]
     Active Substance: DOCUSATE SODIUM
  4. IRBESARTAN [Concomitant]
     Active Substance: IRBESARTAN
  5. JARDIANCE [Concomitant]
     Active Substance: EMPAGLIFLOZIN
  6. METFORMIN [Concomitant]
     Active Substance: METFORMIN HYDROCHLORIDE
  7. METOPROLOL [Concomitant]
     Active Substance: METOPROLOL
  8. PREGABALIN [Concomitant]
     Active Substance: PREGABALIN
  9. ROSUVASTATIN [Concomitant]
     Active Substance: ROSUVASTATIN
  10. TAMSULOSIN [Concomitant]
     Active Substance: TAMSULOSIN
     Dosage: 0.4 MG DAILY (1 DF)

REACTIONS (8)
  - Electrocardiogram T wave inversion [Unknown]
  - Chest pain [Not Recovered/Not Resolved]
  - Ventricular extrasystoles [Unknown]
  - Aortic dilatation [Unknown]
  - Left atrial dilatation [Unknown]
  - Coronary artery disease [Unknown]
  - Condition aggravated [Unknown]
  - Dysphagia [Unknown]

NARRATIVE: CASE EVENT DATE: 20220511
